FAERS Safety Report 5989200-7 (Version None)
Quarter: 2008Q4

REPORT INFORMATION
  Report Type: 
  Country: None (occurrence: None)
  Receive Date: 20081210
  Receipt Date: 20081205
  Transmission Date: 20090506
  Serious: Yes (Death)
  Sender: FDA-Public Use
  Company Number: JP-MERCK-0812USA02081

PATIENT
  Age: 81 Year
  Sex: Male

DRUGS (10)
  1. HYZAAR [Suspect]
     Route: 048
     Dates: start: 20081107
  2. ASPIRIN [Suspect]
     Route: 048
  3. TENORMIN [Suspect]
     Route: 048
  4. ITOROL [Suspect]
     Route: 048
  5. NORVASC [Suspect]
     Route: 048
  6. SELBEX [Suspect]
     Route: 048
  7. CRESTOR [Suspect]
     Route: 048
  8. MYSLEE [Suspect]
     Route: 048
  9. DEPAS [Suspect]
     Route: 048
  10. ALOSENN [Suspect]
     Route: 048

REACTIONS (1)
  - DEATH [None]
